FAERS Safety Report 9022203 (Version 2)
Quarter: 2013Q1

REPORT INFORMATION
  Report Type: Spontaneous
  Country: SE (occurrence: SE)
  Receive Date: 20130118
  Receipt Date: 20130218
  Transmission Date: 20140127
  Serious: Yes (Other)
  Sender: FDA-Public Use
  Company Number: SE-BAXTER-2012BAX028482

PATIENT
  Age: 11 None
  Sex: Female

DRUGS (7)
  1. SEVOFLURANE [Suspect]
     Indication: GENERAL ANAESTHESIA
     Route: 055
     Dates: start: 20121003, end: 20121003
  2. PROPOFOL [Suspect]
     Indication: GENERAL ANAESTHESIA
     Route: 065
     Dates: start: 20121003, end: 20121003
  3. INOVELON [Suspect]
     Indication: PRODUCT USED FOR UNKNOWN INDICATION
     Route: 065
     Dates: start: 20121003, end: 20121003
  4. REMIFENTANIL [Suspect]
     Indication: GENERAL ANAESTHESIA
     Route: 065
     Dates: start: 20121003, end: 20121003
  5. LAMICTAL [Concomitant]
     Indication: PRODUCT USED FOR UNKNOWN INDICATION
     Route: 065
  6. LEHYDAN [Concomitant]
     Indication: PRODUCT USED FOR UNKNOWN INDICATION
  7. FRISIUM [Concomitant]
     Indication: PRODUCT USED FOR UNKNOWN INDICATION
     Route: 065

REACTIONS (4)
  - Post procedural complication [Unknown]
  - Drug level increased [Unknown]
  - Condition aggravated [Unknown]
  - Convulsion [None]
